FAERS Safety Report 8231876 (Version 3)
Quarter: 2012Q4

REPORT INFORMATION
  Report Type: 
  Country: US (occurrence: US)
  Receive Date: 20111106
  Receipt Date: 20121019
  Transmission Date: 20130627
  Serious: Yes (Hospitalization)
  Sender: FDA-Public Use
  Company Number: US-AMGEN-USASP2011046452

PATIENT
  Age: 68 Year
  Sex: Female

DRUGS (4)
  1. ENBREL [Suspect]
     Indication: PSORIATIC ARTHROPATHY
     Dosage: 50 mg, qwk
     Dates: start: 2010
  2. ENBREL [Suspect]
     Indication: PSORIASIS
  3. WELLBUTRIN                         /00700502/ [Concomitant]
     Indication: HYPERTENSION
     Dosage: UNK
  4. HUMIRA [Concomitant]
     Dosage: UNK

REACTIONS (7)
  - Ankle fracture [Recovered/Resolved]
  - Balance disorder [Recovered/Resolved]
  - Fall [Recovered/Resolved]
  - Pruritus [Recovered/Resolved]
  - Contusion [Recovered/Resolved]
  - Skin lesion [Unknown]
  - Psoriasis [Not Recovered/Not Resolved]
